FAERS Safety Report 5585835-4 (Version None)
Quarter: 2008Q1

REPORT INFORMATION
  Report Type: 
  Country: None (occurrence: None)
  Receive Date: 20080109
  Receipt Date: 20071001
  Transmission Date: 20080703
  Serious: Yes (Other)
  Sender: FDA-Public Use
  Company Number: ES-RANBAXY-2007RR-10843

PATIENT

DRUGS (4)
  1. CLARITHROMYCIN [Suspect]
     Indication: UPPER RESPIRATORY TRACT INFECTION
     Dosage: 500 MG, BID
     Route: 048
  2. LORAZEPAM [Concomitant]
     Indication: AGITATION
  3. LORAZEPAM [Concomitant]
     Indication: ANXIETY
  4. CO-AMOXICLAV 500/125 MG TABLETS [Concomitant]
     Dosage: 500/125 MG
     Route: 048

REACTIONS (6)
  - AGITATION [None]
  - ANXIETY [None]
  - DIZZINESS [None]
  - HALLUCINATION, VISUAL [None]
  - NERVOUSNESS [None]
  - PANIC ATTACK [None]
